FAERS Safety Report 14843781 (Version 3)
Quarter: 2018Q3

REPORT INFORMATION
  Report Type: Spontaneous
  Country: DE (occurrence: DE)
  Receive Date: 20180503
  Receipt Date: 20180817
  Transmission Date: 20181010
  Serious: Yes (Other)
  Sender: FDA-Public Use
  Company Number: DE-BRISTOL-MYERS SQUIBB COMPANY-BMS-2018-037224

PATIENT
  Age: 51 Year
  Sex: Female

DRUGS (2)
  1. DENOSUMAB [Suspect]
     Active Substance: DENOSUMAB
     Indication: BLADDER CANCER
     Dosage: UNK
     Route: 065
     Dates: start: 201711
  2. NIVOLUMAB [Suspect]
     Active Substance: NIVOLUMAB
     Indication: BLADDER CANCER
     Dosage: 3 MG/KG, Q2WK
     Route: 065
     Dates: start: 201711

REACTIONS (3)
  - Bladder cancer recurrent [Unknown]
  - Weight increased [Unknown]
  - Vaginal discharge [Unknown]
